FAERS Safety Report 8728910 (Version 2)
Quarter: 2012Q4

REPORT INFORMATION
  Report Type: Report from Study
  Country: DE (occurrence: DE)
  Receive Date: 20120817
  Receipt Date: 20121113
  Transmission Date: 20130627
  Serious: Yes (Hospitalization, Other)
  Sender: FDA-Public Use
  Company Number: DE-PFIZER INC-2012197126

PATIENT
  Age: 35 Year
  Sex: Male
  Weight: 71 kg

DRUGS (6)
  1. GENOTROPIN [Suspect]
     Dosage: 0.5 mg, 7/wk
     Route: 058
     Dates: start: 20030815
  2. KEPPRA [Concomitant]
     Indication: DEPRESSION
     Dosage: UNK
     Dates: start: 20050101
  3. LAMICTAL [Concomitant]
     Indication: EPILEPSY
     Dosage: UNK
     Dates: start: 20020802
  4. NEURONTIN [Concomitant]
     Indication: EPILEPSY
     Dosage: UNK
     Dates: start: 19960701
  5. HYDROCORTISONE [Concomitant]
     Indication: BLOOD CORTICOTROPHIN DECREASED
     Dosage: UNK
     Dates: start: 19980701
  6. OXCARBAZEPINE [Concomitant]
     Indication: EPILEPSY
     Dosage: UNK
     Dates: start: 20040823

REACTIONS (1)
  - Craniocerebral injury [Unknown]
